FAERS Safety Report 8399594-3 (Version None)
Quarter: 2012Q2

REPORT INFORMATION
  Report Type: 
  Country: None (occurrence: None)
  Receive Date: 20120531
  Receipt Date: 20120517
  Transmission Date: 20120825
  Serious: Yes (Other)
  Sender: FDA-Public Use
  Company Number: TR-WATSON-2012-08933

PATIENT
  Age: 12 Year
  Sex: Male

DRUGS (3)
  1. CALCINEURIN INHIBITORS [Suspect]
     Indication: DERMATITIS ATOPIC
     Dosage: UNK
     Route: 065
  2. CYCLOSPORINE [Suspect]
     Indication: DERMATITIS ATOPIC
     Dosage: 5 MG/KG,
  3. CORTICOSTEROIDS [Suspect]
     Indication: DERMATITIS ATOPIC
     Dosage: UNK
     Route: 065

REACTIONS (2)
  - INFECTION [None]
  - DRUG INEFFECTIVE [None]
